FAERS Safety Report 4448500-2 (Version None)
Quarter: 2004Q3

REPORT INFORMATION
  Report Type: 
  Country: None (occurrence: None)
  Receive Date: 20040914
  Receipt Date: 20040902
  Transmission Date: 20050211
  Serious: Yes (Death, Hospitalization)
  Sender: FDA-Public Use
  Company Number: US-JNJFOC-20040901666

PATIENT
  Sex: Female

DRUGS (19)
  1. REMICADE [Suspect]
     Indication: RHEUMATOID ARTHRITIS
     Route: 042
  2. NEURONTIN [Concomitant]
     Dosage: 4 TABLETS
  3. VEETIDS [Concomitant]
  4. PAXIL [Concomitant]
  5. PAXIL [Concomitant]
  6. TRIMOX [Concomitant]
  7. TRIMOX [Concomitant]
  8. DIPHENHYDRAMINE HCL [Concomitant]
  9. TEMAZEPAM [Concomitant]
  10. AUGMENTIN '125' [Concomitant]
  11. AUGMENTIN '125' [Concomitant]
  12. SKELAXIN [Concomitant]
  13. CLIDINIUM [Concomitant]
  14. AMBIEN [Concomitant]
  15. FAMVIR [Concomitant]
  16. WELLBUTRIN [Concomitant]
  17. OXYCODON [Concomitant]
  18. ENTEX CAP [Concomitant]
  19. ENTEX CAP [Concomitant]

REACTIONS (2)
  - LUNG NEOPLASM MALIGNANT [None]
  - PNEUMONIA [None]
